FAERS Safety Report 20761144 (Version 1)
Quarter: 2022Q2

REPORT INFORMATION
  Report Type: Report from Study
  Country: US (occurrence: US)
  Receive Date: 20220428
  Receipt Date: 20220428
  Transmission Date: 20220721
  Serious: Yes (Other)
  Sender: FDA-Public Use
  Company Number: US-BRISTOL-MYERS SQUIBB COMPANY-2022-023405

PATIENT
  Age: 59 Year
  Sex: Male
  Weight: 75.3 kg

DRUGS (7)
  1. REVLIMID [Suspect]
     Active Substance: LENALIDOMIDE
     Indication: Plasma cell myeloma
     Dosage: FREQUENCY 14 OUT OF 21 DAYS
     Route: 048
     Dates: start: 20211105
  2. HYDROCODONE [Concomitant]
     Active Substance: HYDROCODONE
  3. ASPIRIN [Concomitant]
     Active Substance: ASPIRIN
  4. MIRTAZAPINE [Concomitant]
     Active Substance: MIRTAZAPINE
  5. VITAMIN D2 [Concomitant]
     Active Substance: ERGOCALCIFEROL
  6. DEXAMETHASONE [Concomitant]
     Active Substance: DEXAMETHASONE
  7. MORPHINE [Concomitant]
     Active Substance: MORPHINE

REACTIONS (2)
  - Pain [Unknown]
  - Intentional product use issue [Unknown]
